FAERS Safety Report 18775234 (Version 1)
Quarter: 2021Q1

REPORT INFORMATION
  Report Type: Spontaneous
  Country: JP (occurrence: JP)
  Receive Date: 20210122
  Receipt Date: 20210122
  Transmission Date: 20210419
  Serious: Yes (Death)
  Sender: FDA-Public Use
  Company Number: JP-ELI_LILLY_AND_COMPANY-JP202101007993

PATIENT
  Age: 69 Year
  Sex: Female

DRUGS (7)
  1. URSO 1A PHARMA [Concomitant]
  2. FORXIGA [Concomitant]
     Active Substance: DAPAGLIFLOZIN
  3. TRESIBA [Concomitant]
     Active Substance: INSULIN DEGLUDEC
  4. APIDRA [Concomitant]
     Active Substance: INSULIN GLULISINE
  5. OMEPRAZOLE. [Concomitant]
     Active Substance: OMEPRAZOLE
  6. ATOZET [Concomitant]
     Active Substance: ATORVASTATIN CALCIUM\EZETIMIBE
  7. TRULICITY [Suspect]
     Active Substance: DULAGLUTIDE
     Indication: TYPE 2 DIABETES MELLITUS
     Route: 058

REACTIONS (1)
  - Lymphoma [Fatal]

NARRATIVE: CASE EVENT DATE: 20200909
